FAERS Safety Report 16386883 (Version 1)
Quarter: 2019Q2

REPORT INFORMATION
  Report Type: Spontaneous
  Country: US (occurrence: US)
  Receive Date: 20190604
  Receipt Date: 20190604
  Transmission Date: 20190711
  Serious: No
  Sender: FDA-Public Use
  Company Number: US-ASTRAZENECA-2019SE79630

PATIENT
  Sex: Male
  Weight: 65.8 kg

DRUGS (1)
  1. SYMBICORT [Suspect]
     Active Substance: BUDESONIDE\FORMOTEROL FUMARATE DIHYDRATE
     Indication: CHEST PAIN
     Dosage: 80/4.5 MCG, 2 PUFFS TWICE DAILY
     Route: 055

REACTIONS (5)
  - Dysphonia [Not Recovered/Not Resolved]
  - Intentional device misuse [Recovered/Resolved]
  - Product use in unapproved indication [Unknown]
  - Device issue [Unknown]
  - Off label use [Recovered/Resolved]
